FAERS Safety Report 7799670-X (Version None)
Quarter: 2011Q4

REPORT INFORMATION
  Report Type: 
  Country: None (occurrence: None)
  Receive Date: 20111006
  Receipt Date: 20110926
  Transmission Date: 20120403
  Serious: Yes (Hospitalization)
  Sender: FDA-Public Use
  Company Number: ES-ABBOTT-11P-144-0851145-01

PATIENT
  Age: 44 Year
  Sex: Female

DRUGS (9)
  1. COLESTID [Concomitant]
     Indication: LACTOSE INTOLERANCE
     Dosage: 1 BAG TWICE DAILY
     Dates: start: 20100702
  2. HUMIRA [Suspect]
     Route: 058
     Dates: end: 20090201
  3. AMOXICILLIN AND CLAVULANATE POTASSIUM [Concomitant]
     Indication: POSTOPERATIVE WOUND INFECTION
     Dates: start: 20090722
  4. HUMIRA [Suspect]
     Route: 058
     Dates: start: 20091120, end: 20091120
  5. HUMIRA [Suspect]
     Route: 058
  6. HUMIRA [Suspect]
     Route: 058
     Dates: end: 20100105
  7. PREDNISONE [Concomitant]
     Indication: CROHN'S DISEASE
  8. HUMIRA [Suspect]
     Indication: CROHN'S DISEASE
     Route: 058
     Dates: start: 20081030, end: 20081030
  9. CELEBREX [Concomitant]
     Indication: ARTHRALGIA
     Dates: start: 20100702

REACTIONS (1)
  - TUBERCULOSIS [None]
